FAERS Safety Report 17108749 (Version 1)
Quarter: 2019Q4

REPORT INFORMATION
  Report Type: Spontaneous
  Country: US (occurrence: US)
  Receive Date: 20191203
  Receipt Date: 20191203
  Transmission Date: 20200122
  Serious: Yes (Other)
  Sender: FDA-Public Use
  Company Number: US-SA-2019SA332524

PATIENT
  Sex: Male

DRUGS (1)
  1. ELITEK [Suspect]
     Active Substance: RASBURICASE

REACTIONS (1)
  - Acute pulmonary oedema [Unknown]
